FAERS Safety Report 13010929 (Version 1)
Quarter: 2016Q4

REPORT INFORMATION
  Report Type: Report from Study
  Country: CN (occurrence: CN)
  Receive Date: 20161208
  Receipt Date: 20161208
  Transmission Date: 20170207
  Serious: Yes (Other)
  Sender: FDA-Public Use
  Company Number: CN-GILEAD-2016-0247462

PATIENT
  Age: 62 Year
  Sex: Female

DRUGS (2)
  1. ADEFOVIR DIPIVOXIL. [Suspect]
     Active Substance: ADEFOVIR DIPIVOXIL
     Indication: HEPATITIS B
     Dosage: 10 MG, UNK
     Route: 065
     Dates: start: 2006, end: 201111
  2. ADEFOVIR [Suspect]
     Active Substance: ADEFOVIR
     Indication: HEPATITIS B
     Dosage: 10 MG, UNK
     Route: 065
     Dates: start: 2006, end: 201111

REACTIONS (1)
  - Osteomalacia [Unknown]

NARRATIVE: CASE EVENT DATE: 201011
